FAERS Safety Report 5679474-4 (Version None)
Quarter: 2008Q1

REPORT INFORMATION
  Report Type: 
  Country: None (occurrence: None)
  Receive Date: 20080325
  Receipt Date: 20080319
  Transmission Date: 20080703
  Serious: Yes (Other)
  Sender: FDA-Public Use
  Company Number: US-PFIZER INC-2008004599

PATIENT
  Sex: Male
  Weight: 83.9 kg

DRUGS (14)
  1. CHANTIX [Suspect]
     Indication: SMOKING CESSATION THERAPY
     Route: 048
     Dates: start: 20071201, end: 20080101
  2. TRILEPTAL [Concomitant]
     Indication: BIPOLAR DISORDER
  3. BUPROPION HCL [Concomitant]
     Indication: BIPOLAR DISORDER
  4. TERAZOSIN HCL [Concomitant]
     Indication: PROSTATITIS
  5. PROTONIX [Concomitant]
     Indication: GASTROOESOPHAGEAL REFLUX DISEASE
  6. HYDROCHLOROTHIAZIDE [Concomitant]
     Indication: BLOOD PRESSURE
  7. ALLOPURINOL [Concomitant]
     Indication: NEPHROLITHIASIS
  8. VITAMIN CAP [Concomitant]
  9. ASPIRIN [Concomitant]
  10. TRAZODONE HCL [Concomitant]
  11. CALCIUM [Concomitant]
  12. PSYLLIUM [Concomitant]
  13. TESTOSTERONE [Concomitant]
  14. ALPRAZOLAM [Concomitant]

REACTIONS (3)
  - ARTHRALGIA [None]
  - MYALGIA [None]
  - SWELLING [None]
